FAERS Safety Report 5344043-2 (Version None)
Quarter: 2007Q2

REPORT INFORMATION
  Report Type: 
  Country: None (occurrence: None)
  Receive Date: 20070604
  Receipt Date: 20070529
  Transmission Date: 20071010
  Serious: Yes (Hospitalization)
  Sender: FDA-Public Use
  Company Number: A0653172A

PATIENT
  Age: 41 Year

DRUGS (5)
  1. TRIZIVIR [Suspect]
     Indication: HIV INFECTION
     Dosage: 1TAB TWICE PER DAY
     Route: 048
     Dates: start: 20070101, end: 20070525
  2. SUSTIVA [Concomitant]
  3. MULTIVITAMIN [Concomitant]
  4. CHEMOTHERAPY [Concomitant]
  5. RADIATION [Concomitant]

REACTIONS (9)
  - ABDOMINAL PAIN [None]
  - DEHYDRATION [None]
  - DYSPNOEA [None]
  - FATIGUE [None]
  - HEPATITIS B [None]
  - MALAISE [None]
  - PAIN IN EXTREMITY [None]
  - PYREXIA [None]
  - RED BLOOD CELL COUNT DECREASED [None]
